FAERS Safety Report 9061611 (Version 1)
Quarter: 2013Q1

REPORT INFORMATION
  Report Type: Spontaneous
  Country: US (occurrence: None)
  Receive Date: 20130118
  Receipt Date: 20130118
  Transmission Date: 20140127
  Serious: Yes (Other)
  Sender: FDA-Public Use
  Company Number: DSU-2011-05610

PATIENT
  Age: 77 Year
  Sex: Female
  Weight: 72.58 kg

DRUGS (4)
  1. WELCHOL [Suspect]
     Indication: HYPERLIPIDAEMIA
     Route: 048
     Dates: start: 20110725
  2. TIMOLOL [Concomitant]
  3. COREG (CARVEDILOL)(CARVEDILOL) [Concomitant]
  4. ZOLPIDEM (ZOLPIDEM)(ZOLPIDEM) [Concomitant]

REACTIONS (3)
  - Dizziness [None]
  - Fatigue [None]
  - Surgery [None]
